FAERS Safety Report 6522949-6 (Version None)
Quarter: 2009Q4

REPORT INFORMATION
  Report Type: 
  Country: None (occurrence: None)
  Receive Date: 20091230
  Receipt Date: 20091222
  Transmission Date: 20100525
  Serious: Yes (Hospitalization)
  Sender: FDA-Public Use
  Company Number: JP-AMGEN-US185639

PATIENT
  Sex: Male
  Weight: 58 kg

DRUGS (11)
  1. ENBREL [Suspect]
     Indication: RHEUMATOID ARTHRITIS
     Route: 058
     Dates: start: 20050801, end: 20060629
  2. RHEUMATREX [Suspect]
     Indication: RHEUMATOID ARTHRITIS
     Dosage: UNKNOWN
     Route: 048
     Dates: start: 20020301
  3. PREDONINE [Suspect]
     Indication: RHEUMATOID ARTHRITIS
     Route: 048
     Dates: start: 20030401
  4. AZULFIDINE [Suspect]
     Indication: RHEUMATOID ARTHRITIS
     Route: 048
     Dates: start: 20020601
  5. ISCOTIN [Concomitant]
     Indication: ANTIBIOTIC PROPHYLAXIS
     Dosage: UNKNOWN
     Route: 048
     Dates: start: 20050706, end: 20060320
  6. FLUTICASONE PROPIONATE [Concomitant]
     Indication: ASTHMA
     Dosage: UNKNOWN
     Dates: start: 20051001
  7. LIPIDIL [Concomitant]
     Indication: RHEUMATOID ARTHRITIS
     Dosage: UNKNOWN
     Dates: start: 20060601
  8. THEOLONG [Concomitant]
     Indication: ASTHMA
     Dosage: UNKNOWN
     Dates: start: 20060701
  9. MONTELUKAST SODIUM [Concomitant]
     Indication: ASTHMA
     Dosage: UNKNOWN
     Dates: start: 20051001
  10. CYTOTEC [Concomitant]
     Dosage: UNKNOWN
     Route: 048
     Dates: start: 20020801
  11. LOXONIN [Concomitant]
     Indication: RHEUMATOID ARTHRITIS
     Dosage: UNKNOWN
     Route: 048
     Dates: start: 20020801

REACTIONS (1)
  - ASPERGILLOSIS [None]
